FAERS Safety Report 6010642-8 (Version None)
Quarter: 2008Q4

REPORT INFORMATION
  Report Type: 
  Country: None (occurrence: None)
  Receive Date: 20081218
  Receipt Date: 20081113
  Transmission Date: 20090506
  Serious: Yes (Hospitalization)
  Sender: FDA-Public Use
  Company Number: GB-ASTRAZENECA-2008GB02146

PATIENT
  Age: 44 Year
  Sex: Male

DRUGS (2)
  1. CRESTOR [Suspect]
     Indication: BLOOD CHOLESTEROL INCREASED
     Route: 048
     Dates: start: 20081024, end: 20081027
  2. DIFENE [Concomitant]
     Dosage: 25 MG
     Route: 048

REACTIONS (1)
  - SKIN REACTION [None]
